FAERS Safety Report 4743502-0 (Version None)
Quarter: 2005Q3

REPORT INFORMATION
  Report Type: 
  Country: None (occurrence: None)
  Receive Date: 20050809
  Receipt Date: 20050727
  Transmission Date: 20060218
  Serious: Yes (Hospitalization)
  Sender: FDA-Public Use
  Company Number: 2005103948

PATIENT
  Age: 57 Year
  Sex: Male
  Weight: 72 kg

DRUGS (2)
  1. VIAGRA [Suspect]
     Indication: ILL-DEFINED DISORDER
     Dosage: 50 MG (AS NECESSARY), ORAL
     Route: 048
     Dates: start: 20041112
  2. ALLOPURINOL [Suspect]
     Indication: HYPERURICAEMIA
     Dosage: 100 MG (100 MG, 1 IN 1 D), ORAL
     Route: 048
     Dates: start: 20041209, end: 20050509

REACTIONS (3)
  - INTERSTITIAL LUNG DISEASE [None]
  - PERICARDIAL EFFUSION [None]
  - PNEUMONIA [None]
